FAERS Safety Report 25542048 (Version 1)
Quarter: 2025Q3

REPORT INFORMATION
  Report Type: Spontaneous
  Country: US (occurrence: US)
  Receive Date: 20250711
  Receipt Date: 20250711
  Transmission Date: 20251021
  Serious: Yes (Other)
  Sender: NOVO NORDISK
  Company Number: US-NOVOPROD-1474767

PATIENT
  Age: 60 Year
  Sex: Female

DRUGS (3)
  1. FIASP [Suspect]
     Active Substance: INSULIN ASPART
     Indication: Type 1 diabetes mellitus
     Dates: start: 2025
  2. FIASP [Suspect]
     Active Substance: INSULIN ASPART
     Route: 058
     Dates: start: 202502
  3. NOVOLOG [Suspect]
     Active Substance: INSULIN ASPART
     Indication: Type 1 diabetes mellitus
     Dates: start: 200007

REACTIONS (3)
  - Infusion [Unknown]
  - Ketonuria [Recovered/Resolved]
  - Blood glucose increased [Recovered/Resolved]

NARRATIVE: CASE EVENT DATE: 20250701
